FAERS Safety Report 8976169 (Version 10)
Quarter: 2013Q4

REPORT INFORMATION
  Report Type: Report from Study
  Country: CA (occurrence: CA)
  Receive Date: 20121220
  Receipt Date: 20131125
  Transmission Date: 20140711
  Serious: Yes (Hospitalization, Other)
  Sender: FDA-Public Use
  Company Number: PHHY2011CA108326

PATIENT
  Age: 72 Year
  Sex: Male

DRUGS (2)
  1. SANDOSTATIN LAR [Suspect]
     Indication: NEUROENDOCRINE TUMOUR
     Dosage: 30 MG, EVERY 4 WEEKS
     Route: 030
     Dates: start: 20111104
  2. SANDOSTATIN (OCTREOTIDE ACETATE) [Suspect]
     Dosage: UNK UKN, DAILY
     Route: 058

REACTIONS (8)
  - Carcinoid crisis [Unknown]
  - Hormone level abnormal [Unknown]
  - Blood pressure increased [Unknown]
  - Hair colour changes [Unknown]
  - Weight gain poor [Unknown]
  - Weight decreased [Unknown]
  - Injection site pain [Unknown]
  - Heart rate decreased [Unknown]
